FAERS Safety Report 4910195-9 (Version None)
Quarter: 2006Q1

REPORT INFORMATION
  Report Type: 
  Country: None (occurrence: None)
  Receive Date: 20060213
  Receipt Date: 20060103
  Transmission Date: 20060701
  Serious: Yes (Other)
  Sender: FDA-Public Use
  Company Number: US-MERCK-0601USA00224

PATIENT
  Age: 64 Year
  Sex: Male
  Weight: 84 kg

DRUGS (23)
  1. ADVAIR DISKUS 100/50 [Concomitant]
     Route: 065
  2. GUIATUSS DM [Concomitant]
     Route: 065
  3. LEVAQUIN [Concomitant]
     Route: 065
  4. NEURONTIN [Concomitant]
     Route: 065
  5. DETROL LA [Concomitant]
     Route: 065
  6. TYLENOL W/ CODEINE [Concomitant]
     Route: 065
  7. QUININE SULFATE [Concomitant]
     Route: 065
  8. ISOSORBIDE [Concomitant]
     Route: 065
  9. VIOXX [Suspect]
     Indication: PAIN
     Route: 048
     Dates: start: 20010101, end: 20050101
  10. [THERAPY UNSPECIFIED] [Concomitant]
     Route: 065
  11. AMBIEN [Concomitant]
     Route: 065
  12. ACETAMINOPHEN AND HYDROCODONE BITARTRATE [Concomitant]
     Route: 065
  13. METOPROLOL [Concomitant]
     Route: 065
  14. MYLANTA [Concomitant]
     Route: 065
  15. COLACE [Concomitant]
     Route: 065
  16. COZAAR [Concomitant]
     Route: 065
  17. ASPIRIN [Concomitant]
     Route: 065
  18. FLONASE [Concomitant]
     Route: 065
  19. TRAMADOL HYDROCHLORIDE [Concomitant]
     Route: 065
  20. PREVACID [Concomitant]
     Route: 065
  21. GLUCOPHAGE [Concomitant]
     Route: 065
  22. GLIPIZIDE [Concomitant]
     Route: 065
  23. ALBUTEROL [Concomitant]
     Route: 065

REACTIONS (8)
  - CHEST PAIN [None]
  - CORONARY ARTERY DISEASE [None]
  - DIZZINESS [None]
  - DYSPNOEA [None]
  - HEAD INJURY [None]
  - INJURY [None]
  - MYOCARDIAL INFARCTION [None]
  - ROAD TRAFFIC ACCIDENT [None]
